FAERS Safety Report 9895450 (Version 1)
Quarter: 2014Q1

REPORT INFORMATION
  Report Type: Spontaneous
  Country: US (occurrence: US)
  Receive Date: 20140213
  Receipt Date: 20140213
  Transmission Date: 20141002
  Serious: No
  Sender: FDA-Public Use
  Company Number: US-BRISTOL-MYERS SQUIBB COMPANY-18704718

PATIENT
  Age: 59 Year
  Sex: Female
  Weight: 72.56 kg

DRUGS (2)
  1. ABATACEPT SUBQ INJECTION 125MG/ML [Suspect]
     Dosage: LAST INJ: 16MAR2013
     Route: 058
  2. PREDNISONE [Concomitant]

REACTIONS (1)
  - Cough [Unknown]
